FAERS Safety Report 9721425 (Version 1)
Quarter: 2013Q4

REPORT INFORMATION
  Report Type: Spontaneous
  Country: US (occurrence: US)
  Receive Date: 20131129
  Receipt Date: 20131129
  Transmission Date: 20140711
  Serious: No
  Sender: FDA-Public Use
  Company Number: US-B.I. PHARMACEUTICALS,INC./RIDGEFIELD-2013-BI-38194BP

PATIENT
  Age: 67 Year
  Sex: Female
  Weight: 93 kg

DRUGS (12)
  1. PRADAXA [Suspect]
     Indication: ATRIAL FIBRILLATION
     Dosage: 300 MG
     Route: 048
     Dates: start: 201307
  2. FISH OIL [Concomitant]
     Route: 048
  3. KETOCONAZOLE SHAMPOO [Concomitant]
     Indication: DRY SKIN
     Route: 061
  4. CALCIUM [Concomitant]
     Route: 048
  5. CELEBREX [Concomitant]
     Indication: ARTHRITIS
     Dosage: 200 MG
     Route: 048
  6. VITAMIN C [Concomitant]
     Route: 048
  7. MULTIVITAMIN [Concomitant]
     Route: 048
  8. SIMVASTATIN [Concomitant]
     Indication: BLOOD CHOLESTEROL INCREASED
     Dosage: 40 MG
     Route: 048
  9. METOPROLOL [Concomitant]
     Indication: HYPERTENSION
     Dosage: 25 MG
     Route: 048
  10. GLUCOSAMINE [Concomitant]
     Indication: BLOOD CHOLESTEROL INCREASED
     Dosage: 1500 MG
     Route: 048
  11. VITAMIN D [Concomitant]
     Route: 048
  12. DESONIDE CREAM [Concomitant]
     Indication: RASH
     Route: 061

REACTIONS (2)
  - Cough [Not Recovered/Not Resolved]
  - Pulmonary congestion [Not Recovered/Not Resolved]
